FAERS Safety Report 5107571-0 (Version None)
Quarter: 2006Q3

REPORT INFORMATION
  Report Type: 
  Country: None (occurrence: None)
  Receive Date: 20060913
  Receipt Date: 20060913
  Transmission Date: 20061208
  Serious: No
  Sender: FDA-Public Use
  Company Number: None

PATIENT
  Sex: Female
  Weight: 60.6006 kg

DRUGS (9)
  1. HYDROCODONE BITARTRATE + ACETAMINOPHEN [Suspect]
     Indication: ARTHRALGIA
     Dosage: 1 TABLET Q6H PRN PO
     Route: 048
     Dates: start: 20060720, end: 20060803
  2. OXYCODONE AND ACETAMINOPHEN [Concomitant]
  3. ALBUTEROL [Concomitant]
  4. ATENOLOL [Concomitant]
  5. BUPROPION HCL [Concomitant]
  6. CHLORZOXAZONE [Concomitant]
  7. ETODOLAC [Concomitant]
  8. FEXOFENADINE HCL [Concomitant]
  9. MOMETASONE FUROATE [Concomitant]

REACTIONS (5)
  - ANXIETY [None]
  - INSOMNIA [None]
  - NERVOUSNESS [None]
  - NIGHTMARE [None]
  - PHARMACEUTICAL PRODUCT COMPLAINT [None]
